FAERS Safety Report 19025697 (Version 3)
Quarter: 2021Q2

REPORT INFORMATION
  Report Type: Spontaneous
  Country: US (occurrence: US)
  Receive Date: 20210318
  Receipt Date: 20210515
  Transmission Date: 20210717
  Serious: No
  Sender: FDA-Public Use
  Company Number: US-SA-2021SA090243

PATIENT
  Age: 4 Year

DRUGS (4)
  1. LUMIZYME [Suspect]
     Active Substance: ALGLUCOSIDASE ALFA
     Indication: GLYCOGEN STORAGE DISEASE TYPE II
     Dosage: 40 MG/KG, QOW
     Route: 065
  2. METHOTREXATE. [Concomitant]
     Active Substance: METHOTREXATE
     Indication: IMMUNOMODULATORY THERAPY
     Dosage: UNK
  3. RITUXIMAB. [Concomitant]
     Active Substance: RITUXIMAB
     Indication: IMMUNOMODULATORY THERAPY
  4. BORTEZOMIB. [Concomitant]
     Active Substance: BORTEZOMIB
     Indication: IMMUNOMODULATORY THERAPY

REACTIONS (7)
  - Blood creatine phosphokinase increased [Unknown]
  - Drug specific antibody present [Unknown]
  - General physical health deterioration [Unknown]
  - Transaminases increased [Unknown]
  - Scoliosis [Unknown]
  - Asthenia [Unknown]
  - Urinary hexose tetrasaccharide increased [Unknown]
